FAERS Safety Report 4816638-3 (Version None)
Quarter: 2005Q4

REPORT INFORMATION
  Report Type: 
  Country: None (occurrence: None)
  Receive Date: 20051028
  Receipt Date: 20051020
  Transmission Date: 20060501
  Serious: Yes (Other)
  Sender: FDA-Public Use
  Company Number: 2005-BP-18635RO

PATIENT
  Age: 61 Year
  Sex: Female

DRUGS (1)
  1. METHOTREXATE [Suspect]
     Indication: BREAST CANCER METASTATIC
     Dosage: 20 MG X 1 DOSE

REACTIONS (3)
  - CARDIOTOXICITY [None]
  - DRUG TOXICITY [None]
  - SUPRAVENTRICULAR EXTRASYSTOLES [None]
